FAERS Safety Report 5657581-X (Version None)
Quarter: 2008Q1

REPORT INFORMATION
  Report Type: 
  Country: None (occurrence: None)
  Receive Date: 20080310
  Receipt Date: 20080227
  Transmission Date: 20080703
  Serious: Yes (Other)
  Sender: FDA-Public Use
  Company Number: US-PFIZER INC-2008019965

PATIENT
  Sex: Female
  Weight: 54.545 kg

DRUGS (4)
  1. CHANTIX [Suspect]
     Indication: SMOKING CESSATION THERAPY
     Dates: start: 20080211, end: 20080225
  2. ATENOLOL [Concomitant]
     Indication: HYPERTENSION
  3. ALL OTHER THERAPEUTIC PRODUCTS [Concomitant]
  4. IBANDRONATE SODIUM [Concomitant]

REACTIONS (1)
  - BLOOD PRESSURE INCREASED [None]
